FAERS Safety Report 5850802-X (Version None)
Quarter: 2008Q3

REPORT INFORMATION
  Report Type: 
  Country: None (occurrence: None)
  Receive Date: 20080820
  Receipt Date: 20080812
  Transmission Date: 20090109
  Serious: Yes (Hospitalization)
  Sender: FDA-Public Use
  Company Number: CA-JNJFOC-20080800295

PATIENT
  Sex: Female
  Weight: 55.79 kg

DRUGS (3)
  1. LEVAQUIN [Suspect]
     Route: 042
  2. LEVAQUIN [Suspect]
     Indication: PNEUMONIA
     Route: 042
  3. XOLAIR [Suspect]
     Indication: ASTHMA
     Route: 042

REACTIONS (3)
  - TENDON PAIN [None]
  - TENDONITIS [None]
  - TENOSYNOVITIS [None]
